FAERS Safety Report 16206234 (Version 1)
Quarter: 2019Q2

REPORT INFORMATION
  Report Type: Spontaneous
  Country: US (occurrence: US)
  Receive Date: 20190416
  Receipt Date: 20190416
  Transmission Date: 20190711
  Serious: No
  Sender: FDA-Public Use
  Company Number: None

PATIENT
  Age: 35 Year
  Sex: Female
  Weight: 69.3 kg

DRUGS (8)
  1. AIMOVIG [Concomitant]
     Active Substance: ERENUMAB-AOOE
  2. VITAMIN B COMPLEX [Concomitant]
     Active Substance: CYANOCOBALAMIN\DEXPANTHENOL\NIACINAMIDE\PYRIDOXINE HYDROCHLORIDE\RIBOFLAVIN 5^-PHOSPHATE SODIUM\THIAMINE HYDROCHLORIDE\VITAMIN B COMPLEX
  3. AIMOVIG [Suspect]
     Active Substance: ERENUMAB-AOOE
     Indication: MIGRAINE
     Dosage: ?          QUANTITY:2 INJECTION(S);OTHER FREQUENCY:ONCE A MONTH;?
     Route: 058
     Dates: start: 20180920, end: 20181220
  4. RHINOCORT [Concomitant]
     Active Substance: BUDESONIDE
  5. EMGALITY [Concomitant]
     Active Substance: GALCANEZUMAB-GNLM
  6. PULMICORT FLEXHALER [Concomitant]
     Active Substance: BUDESONIDE
  7. ZIPSOR [Concomitant]
     Active Substance: DICLOFENAC POTASSIUM
  8. VITAMIN D [Concomitant]
     Active Substance: VITAMIN D NOS

REACTIONS (3)
  - Alopecia [None]
  - Product label issue [None]
  - Product use complaint [None]

NARRATIVE: CASE EVENT DATE: 20181220
